FAERS Safety Report 10869859 (Version 1)
Quarter: 2015Q1

REPORT INFORMATION
  Report Type: Spontaneous
  Country: US (occurrence: US)
  Receive Date: 20150226
  Receipt Date: 20150226
  Transmission Date: 20150721
  Serious: No
  Sender: FDA-Public Use
  Company Number: US-ASTRAZENECA-2015SE15673

PATIENT
  Age: 24429 Day
  Sex: Male
  Weight: 136.5 kg

DRUGS (19)
  1. ATORVASTATIN [Concomitant]
     Active Substance: ATORVASTATIN
  2. HYDROCODONE [Concomitant]
     Active Substance: HYDROCODONE
  3. VITAMIN E [Concomitant]
     Active Substance: .ALPHA.-TOCOPHEROL
  4. METHOCARBINOL [Concomitant]
  5. OMEGA 3 [Concomitant]
     Active Substance: OMEGA-3 FATTY ACIDS
     Dosage: DAILY
  6. VITAMIN C [Concomitant]
     Active Substance: ASCORBIC ACID
  7. PANTOPRIZOLE [Concomitant]
     Dosage: DAILY
  8. NOVOLOG [Concomitant]
     Active Substance: INSULIN ASPART
     Route: 058
  9. ASPIRIN. [Concomitant]
     Active Substance: ASPIRIN
  10. HYDRALAZINE [Concomitant]
     Active Substance: HYDRALAZINE HYDROCHLORIDE
  11. AMLOMAPINE [Concomitant]
     Dosage: DAILY
  12. LASIX [Concomitant]
     Active Substance: FUROSEMIDE
  13. METOLAZONE. [Concomitant]
     Active Substance: METOLAZONE
  14. TERAZOSIN [Concomitant]
     Active Substance: TERAZOSIN\TERAZOSIN HYDROCHLORIDE
     Indication: PROSTATIC ABSCESS
     Dosage: TWO TIMES A DAY
  15. BYDUREON [Suspect]
     Active Substance: EXENATIDE
     Indication: TYPE 2 DIABETES MELLITUS
     Route: 058
     Dates: start: 20150214
  16. ALLOPURINOL. [Concomitant]
     Active Substance: ALLOPURINOL
  17. WARFARIN [Concomitant]
     Active Substance: WARFARIN
  18. LANTUS [Concomitant]
     Active Substance: INSULIN GLARGINE
     Route: 058
  19. EROCALCIFEROL [Concomitant]

REACTIONS (10)
  - Regurgitation [Unknown]
  - Blood glucose fluctuation [Unknown]
  - Dysphagia [Unknown]
  - Neck pain [Unknown]
  - Injection site haemorrhage [Recovered/Resolved]
  - Nausea [Unknown]
  - Abdominal pain upper [Unknown]
  - Vomiting [Recovered/Resolved]
  - Musculoskeletal pain [Unknown]
  - Abdominal discomfort [Unknown]

NARRATIVE: CASE EVENT DATE: 20150214
